FAERS Safety Report 21916988 (Version 2)
Quarter: 2023Q1

REPORT INFORMATION
  Report Type: Spontaneous
  Country: DE (occurrence: DE)
  Receive Date: 20230126
  Receipt Date: 20230206
  Transmission Date: 20230417
  Serious: Yes (Other)
  Sender: FDA-Public Use
  Company Number: DE-Zentiva-2022-ZT-012756

PATIENT
  Age: 5 Year
  Sex: Male

DRUGS (13)
  1. SORAFENIB [Suspect]
     Active Substance: SORAFENIB
     Indication: Acute myeloid leukaemia
     Dosage: 100 MILLIGRAM, BID
     Route: 065
  2. SORAFENIB [Suspect]
     Active Substance: SORAFENIB
     Indication: Acute myeloid leukaemia
     Dosage: 200 MG/SQ. METER, QD FILM COATED TAB
     Route: 065
  3. PREDNISOLONE [Suspect]
     Active Substance: PREDNISOLONE
     Indication: Product used for unknown indication
     Dosage: UNK
     Route: 037
  4. METHOTREXATE [Suspect]
     Active Substance: METHOTREXATE
     Indication: Product used for unknown indication
     Dosage: UNK
     Route: 037
  5. DAUNORUBICIN [Suspect]
     Active Substance: DAUNORUBICIN
     Indication: Acute myeloid leukaemia
     Route: 065
  6. ETOPOSIDE [Suspect]
     Active Substance: ETOPOSIDE
     Indication: Product used for unknown indication
     Dosage: UNK
     Route: 065
  7. TOBRAMYCIN [Concomitant]
     Active Substance: TOBRAMYCIN
     Dosage: UNK
     Route: 065
  8. CYTARABINE [Concomitant]
     Active Substance: CYTARABINE
     Indication: Acute myeloid leukaemia
     Dosage: UNK
     Route: 042
  9. CYTARABINE [Concomitant]
     Active Substance: CYTARABINE
     Dosage: UNK
     Route: 037
  10. CYTARABINE [Concomitant]
     Active Substance: CYTARABINE
     Dosage: UNK
     Route: 065
  11. OSELTAMIVIR [Concomitant]
     Active Substance: OSELTAMIVIR
     Indication: Influenza
     Dosage: UNK
     Route: 065
  12. TAZOBACTAM [Concomitant]
     Active Substance: TAZOBACTAM
     Dosage: UNK
     Route: 065
  13. PIPERACILLIN [Concomitant]
     Active Substance: PIPERACILLIN
     Dosage: UNK
     Route: 065

REACTIONS (11)
  - Tumour lysis syndrome [Unknown]
  - Thrombocytopenia [Unknown]
  - Influenza [Unknown]
  - Hyperphosphataemia [Recovered/Resolved]
  - Blood potassium increased [Recovered/Resolved]
  - Anaemia [Unknown]
  - Hypocalcaemia [Recovered/Resolved]
  - Rash [Unknown]
  - Respiratory syncytial virus infection [Unknown]
  - Blood lactate dehydrogenase increased [Unknown]
  - Off label use [Unknown]
